FAERS Safety Report 17641201 (Version 1)
Quarter: 2020Q2

REPORT INFORMATION
  Report Type: Spontaneous
  Country: GB (occurrence: GB)
  Receive Date: 20200407
  Receipt Date: 20200407
  Transmission Date: 20200713
  Serious: Yes (Other)
  Sender: FDA-Public Use
  Company Number: GB-PFIZER INC-2020138551

PATIENT
  Age: 70 Year
  Sex: Female

DRUGS (3)
  1. PACLITAXEL. [Suspect]
     Active Substance: PACLITAXEL
     Dosage: UNK
  2. FERROUS SULPHATE [FERROUS SULFATE] [Concomitant]
     Active Substance: FERROUS SULFATE
     Dosage: 200 MG, ALTERNATE DAY
  3. HERCEPTIN [Suspect]
     Active Substance: TRASTUZUMAB
     Dosage: 3 WEEKLY
     Route: 058

REACTIONS (10)
  - Sensory loss [Not Recovered/Not Resolved]
  - Hypoaesthesia oral [Recovering/Resolving]
  - Neuropathy peripheral [Unknown]
  - Fatigue [Unknown]
  - Back pain [Recovered/Resolved]
  - Fall [Unknown]
  - Upper limb fracture [Not Recovered/Not Resolved]
  - Paraesthesia [Not Recovered/Not Resolved]
  - Balance disorder [Not Recovered/Not Resolved]
  - Dizziness [Recovered/Resolved]
